FAERS Safety Report 7467112-X (Version None)
Quarter: 2011Q2

REPORT INFORMATION
  Report Type: 
  Country: None (occurrence: None)
  Receive Date: 20110509
  Receipt Date: 20101014
  Transmission Date: 20111010
  Serious: No
  Sender: FDA-Public Use
  Company Number: US-ALEXION-A201001304

PATIENT
  Sex: Male

DRUGS (4)
  1. SOLIRIS [Suspect]
     Indication: PAROXYSMAL NOCTURNAL HAEMOGLOBINURIA
     Dosage: 600 MG, QW
     Route: 042
     Dates: start: 20090706, end: 20090727
  2. PREDNISONE [Concomitant]
     Indication: HYPOPITUITARISM
     Dosage: 15 MG, QD
     Route: 048
  3. SOLIRIS [Suspect]
     Dosage: 900 MG, Q2W
     Route: 042
     Dates: start: 20090803, end: 20101006
  4. SOLIRIS [Suspect]
     Dosage: 600 MG, Q2W
     Route: 042
     Dates: start: 20101020

REACTIONS (5)
  - MUSCULAR WEAKNESS [None]
  - FATIGUE [None]
  - RASH MACULAR [None]
  - BACK PAIN [None]
  - ASTHENIA [None]
